FAERS Safety Report 6815834-3 (Version None)
Quarter: 2010Q3

REPORT INFORMATION
  Report Type: 
  Country: None (occurrence: None)
  Receive Date: 20100705
  Receipt Date: 20100625
  Transmission Date: 20110219
  Serious: Yes (Hospitalization)
  Sender: FDA-Public Use
  Company Number: US-BIOGENIDEC-2010BI021388

PATIENT
  Age: 54 Year
  Sex: Female
  Weight: 71 kg

DRUGS (9)
  1. TYSABRI [Suspect]
     Indication: MULTIPLE SCLEROSIS
     Route: 042
     Dates: start: 20091230, end: 20100601
  2. VYTORIN [Concomitant]
     Indication: BLOOD CHOLESTEROL INCREASED
  3. ZANAFLEX [Concomitant]
     Indication: MUSCLE SPASTICITY
  4. BACLOFEN [Concomitant]
     Indication: MUSCLE SPASTICITY
  5. ZOLPIDEM [Concomitant]
     Indication: INSOMNIA
  6. FLOMAX [Concomitant]
     Indication: URINARY INCONTINENCE
  7. HYDROCHLOROTHIAZIDE [Concomitant]
     Indication: HYPERTENSION
  8. AMIODIPINE [Concomitant]
     Indication: HYPERTENSION
  9. WARFARIN [Concomitant]
     Indication: THROMBOSIS PROPHYLAXIS

REACTIONS (1)
  - OVARIAN CANCER [None]
